FAERS Safety Report 17903587 (Version 2)
Quarter: 2021Q1

REPORT INFORMATION
  Report Type: Spontaneous
  Country: US (occurrence: US)
  Receive Date: 20200616
  Receipt Date: 20210121
  Transmission Date: 20210419
  Serious: Yes (Death, Other)
  Sender: FDA-Public Use
  Company Number: US-PURDUE-USA-2020-0154466

PATIENT
  Age: 65 Year
  Sex: Female

DRUGS (2)
  1. FENTANYL. [Suspect]
     Active Substance: FENTANYL
     Indication: SYSTEMIC LUPUS ERYTHEMATOSUS
     Dosage: 100 MG, UNK
     Route: 062
  2. OXYCODONE HCL CR TABLETS (SIMILAR TO NDA 22?272) [Suspect]
     Active Substance: OXYCODONE HYDROCHLORIDE
     Indication: SYSTEMIC LUPUS ERYTHEMATOSUS
     Route: 048

REACTIONS (1)
  - Drug dependence [Fatal]

NARRATIVE: CASE EVENT DATE: 20170320
